FAERS Safety Report 5393598-0 (Version None)
Quarter: 2007Q3

REPORT INFORMATION
  Report Type: 
  Country: None (occurrence: None)
  Receive Date: 20070723
  Receipt Date: 20060919
  Transmission Date: 20080115
  Serious: No
  Sender: FDA-Public Use
  Company Number: A0620693A

PATIENT
  Age: 38 Year
  Sex: Male

DRUGS (1)
  1. AVANDIA [Suspect]
     Dosage: 8MG PER DAY
     Route: 048
     Dates: start: 20031201, end: 20060918

REACTIONS (1)
  - BLOOD GLUCOSE DECREASED [None]
